FAERS Safety Report 14032668 (Version 1)
Quarter: 2017Q4

REPORT INFORMATION
  Report Type: Spontaneous
  Country: CH (occurrence: CH)
  Receive Date: 20171003
  Receipt Date: 20171003
  Transmission Date: 20180321
  Serious: Yes (Hospitalization)
  Sender: FDA-Public Use
  Company Number: CH-ROCHE-2002140

PATIENT
  Age: 36 Year
  Sex: Male

DRUGS (7)
  1. CALCIMAGON D3 [Concomitant]
     Active Substance: CALCIUM\CHOLECALCIFEROL
     Route: 048
  2. SPIRICORT [Concomitant]
     Active Substance: PREDNISOLONE
     Indication: COLITIS
     Route: 048
     Dates: start: 20170823, end: 20170828
  3. SPIRICORT [Concomitant]
     Active Substance: PREDNISOLONE
     Route: 048
     Dates: start: 20170829
  4. NOVALGIN (SWITZERLAND) [Suspect]
     Active Substance: DIPYRONE
     Indication: ANALGESIC THERAPY
     Route: 048
     Dates: start: 20170823, end: 20170830
  5. CELLCEPT [Suspect]
     Active Substance: MYCOPHENOLATE MOFETIL\MYCOPHENOLATE MOFETIL HYDROCHLORIDE
     Indication: AUTOIMMUNE HEPATITIS
     Route: 048
     Dates: end: 20170830
  6. PANTOPRAZOL [Concomitant]
     Active Substance: PANTOPRAZOLE SODIUM
     Route: 048
  7. TEMESTA EXPIDET [Concomitant]
     Active Substance: LORAZEPAM
     Route: 048

REACTIONS (2)
  - Agranulocytosis [Recovered/Resolved]
  - Lymphopenia [Recovered/Resolved]

NARRATIVE: CASE EVENT DATE: 20170831
